FAERS Safety Report 24674073 (Version 4)
Quarter: 2025Q1

REPORT INFORMATION
  Report Type: Spontaneous
  Country: AT (occurrence: AT)
  Receive Date: 20241128
  Receipt Date: 20250214
  Transmission Date: 20250408
  Serious: Yes (Other)
  Sender: ROCHE
  Company Number: None

PATIENT
  Age: 66 Year
  Sex: Female
  Weight: 170 kg

DRUGS (83)
  1. TRASTUZUMAB [Suspect]
     Active Substance: TRASTUZUMAB
     Indication: Breast cancer
     Route: 065
  2. TRASTUZUMAB [Suspect]
     Active Substance: TRASTUZUMAB
     Indication: Breast cancer metastatic
     Route: 065
  3. CAPECITABINE [Suspect]
     Active Substance: CAPECITABINE
     Indication: Breast cancer
     Dosage: 300 MILLIGRAM, QD
     Route: 065
     Dates: end: 20200108
  4. CAPECITABINE [Suspect]
     Active Substance: CAPECITABINE
     Dosage: 300 MILLIGRAM, QD
     Route: 065
     Dates: end: 20200108
  5. KADCYLA [Suspect]
     Active Substance: ADO-TRASTUZUMAB EMTANSINE
     Indication: Breast cancer metastatic
     Dosage: 270 MILLIGRAM, Q3W
     Route: 050
     Dates: start: 20190306, end: 20190919
  6. KADCYLA [Suspect]
     Active Substance: ADO-TRASTUZUMAB EMTANSINE
     Dosage: 270 MILLIGRAM, Q3W
     Route: 050
     Dates: start: 20190306, end: 20190919
  7. FASLODEX [Suspect]
     Active Substance: FULVESTRANT
     Indication: Breast cancer
     Dosage: 500 MILLIGRAM
     Route: 050
     Dates: start: 20171002, end: 20171115
  8. FASLODEX [Suspect]
     Active Substance: FULVESTRANT
     Route: 050
     Dates: start: 20171002, end: 20171115
  9. FASLODEX [Suspect]
     Active Substance: FULVESTRANT
     Route: 050
     Dates: start: 20171002, end: 20171115
  10. FASLODEX [Suspect]
     Active Substance: FULVESTRANT
     Route: 050
     Dates: start: 20171002, end: 20171115
  11. TRASTUZUMAB DERUXTECAN [Suspect]
     Active Substance: TRASTUZUMAB DERUXTECAN
     Indication: Breast cancer metastatic
     Route: 050
     Dates: end: 20201015
  12. TRASTUZUMAB DERUXTECAN [Suspect]
     Active Substance: TRASTUZUMAB DERUXTECAN
     Route: 050
     Dates: end: 20201015
  13. TYKERB [Suspect]
     Active Substance: LAPATINIB DITOSYLATE
     Indication: Breast cancer
     Dosage: 100 MILLIGRAM, QD
     Route: 050
     Dates: end: 20200421
  14. TYKERB [Suspect]
     Active Substance: LAPATINIB DITOSYLATE
     Dosage: 100 MILLIGRAM, QD
     Route: 050
     Dates: end: 20200421
  15. NAVELBINE [Suspect]
     Active Substance: VINORELBINE TARTRATE
     Indication: Breast cancer metastatic
     Dosage: 45 MILLIGRAM, QW
     Route: 042
  16. NAVELBINE [Suspect]
     Active Substance: VINORELBINE TARTRATE
     Dosage: 45 MILLIGRAM, QW
     Route: 042
  17. NAVELBINE [Suspect]
     Active Substance: VINORELBINE TARTRATE
     Dosage: 45 MILLIGRAM, QW
     Route: 042
  18. NAVELBINE [Suspect]
     Active Substance: VINORELBINE TARTRATE
     Dosage: 45 MILLIGRAM, QW
     Route: 042
  19. DOXIL [Suspect]
     Active Substance: DOXORUBICIN HYDROCHLORIDE
     Indication: Breast cancer metastatic
     Dosage: 104.4 MILLIGRAM, QD
     Route: 050
  20. DOXIL [Suspect]
     Active Substance: DOXORUBICIN HYDROCHLORIDE
     Dosage: 104.4 MILLIGRAM, QD
     Route: 050
     Dates: end: 20210608
  21. TUCATINIB [Suspect]
     Active Substance: TUCATINIB
     Indication: Breast cancer metastatic
     Route: 065
  22. TUCATINIB [Suspect]
     Active Substance: TUCATINIB
     Route: 065
  23. TUCATINIB [Suspect]
     Active Substance: TUCATINIB
     Route: 065
  24. TUCATINIB [Suspect]
     Active Substance: TUCATINIB
     Route: 065
  25. DENOSUMAB [Suspect]
     Active Substance: DENOSUMAB
     Indication: Breast cancer metastatic
     Dosage: 120 MILLIGRAM, Q4W
     Route: 042
  26. DENOSUMAB [Suspect]
     Active Substance: DENOSUMAB
     Dosage: 120 MILLIGRAM, Q4W
     Route: 042
  27. TAXOTERE [Suspect]
     Active Substance: DOCETAXEL
     Indication: Breast cancer metastatic
     Route: 065
  28. TAXOTERE [Suspect]
     Active Substance: DOCETAXEL
     Route: 065
  29. ACETAMINOPHEN [Concomitant]
     Active Substance: ACETAMINOPHEN
     Indication: Product used for unknown indication
     Route: 065
     Dates: end: 20200506
  30. ACETAMINOPHEN [Concomitant]
     Active Substance: ACETAMINOPHEN
     Route: 065
     Dates: end: 20200506
  31. CARBOXYMETHYLCELLULOSE SODIUM [Concomitant]
     Active Substance: CARBOXYMETHYLCELLULOSE SODIUM
     Indication: Product used for unknown indication
     Route: 065
  32. POLYETHYLENE GLYCOL 3350\POTASSIUM CHLORIDE\SODIUM BICARBONATE\SODIUM [Concomitant]
     Active Substance: POLYETHYLENE GLYCOL 3350\POTASSIUM CHLORIDE\SODIUM BICARBONATE\SODIUM CHLORIDE
  33. MORPHINE [Concomitant]
     Active Substance: MORPHINE
  34. SCOTTOPECT [Concomitant]
  35. ALPRAZOLAM [Concomitant]
     Active Substance: ALPRAZOLAM
  36. HYDROMORPHONE HYDROCHLORIDE [Concomitant]
     Active Substance: HYDROMORPHONE HYDROCHLORIDE
  37. NERIFORTE [Concomitant]
  38. DROPERIDOL [Concomitant]
     Active Substance: DROPERIDOL
  39. BETAMETHASONE DIPROPIONATE [Concomitant]
     Active Substance: BETAMETHASONE DIPROPIONATE
  40. EUTHYROX [Concomitant]
     Active Substance: LEVOTHYROXINE SODIUM
  41. ZOFRAN [Concomitant]
     Active Substance: ONDANSETRON HYDROCHLORIDE
  42. ONDANSETRON [Concomitant]
     Active Substance: ONDANSETRON
  43. Paspertin [Concomitant]
  44. FENTANYL [Concomitant]
     Active Substance: FENTANYL
  45. LEVOFLOXACIN [Concomitant]
     Active Substance: LEVOFLOXACIN
  46. LEVOFLOXACIN [Concomitant]
     Active Substance: LEVOFLOXACIN
  47. BUTYLSCOPOLAMINE BROMIDE [Concomitant]
     Active Substance: BUTYLSCOPOLAMINE BROMIDE
  48. LIDOCAINE [Concomitant]
     Active Substance: LIDOCAINE
  49. Oleovit [Concomitant]
  50. SALINE [Concomitant]
     Active Substance: SODIUM CHLORIDE
  51. Paracodin [Concomitant]
  52. DRONABINOL [Concomitant]
     Active Substance: DRONABINOL
  53. EDOXABAN TOSYLATE [Concomitant]
     Active Substance: EDOXABAN TOSYLATE
  54. POTASSIUM CHLORIDE [Concomitant]
     Active Substance: POTASSIUM CHLORIDE
  55. XGEVA [Concomitant]
     Active Substance: DENOSUMAB
  56. LOVENOX [Concomitant]
     Active Substance: ENOXAPARIN SODIUM
  57. LORAZEPAM [Concomitant]
     Active Substance: LORAZEPAM
  58. FUROSEMIDE [Concomitant]
     Active Substance: FUROSEMIDE
  59. PREGABALIN [Concomitant]
     Active Substance: PREGABALIN
  60. LACTULOSE [Concomitant]
     Active Substance: LACTULOSE
  61. PERTUZUMAB [Concomitant]
     Active Substance: PERTUZUMAB
  62. PERTUZUMAB [Concomitant]
     Active Substance: PERTUZUMAB
  63. PONVERIDOL [Concomitant]
  64. Kalioral [Concomitant]
  65. Novalgin [Concomitant]
  66. SILICON [Concomitant]
     Active Substance: SILICON
  67. BETAISODONA [Concomitant]
     Active Substance: POVIDONE-IODINE
  68. CALCIUM CARBONATE\CHOLECALCIFEROL [Concomitant]
     Active Substance: CALCIUM CARBONATE\CHOLECALCIFEROL
  69. DEXAMETHASONE [Concomitant]
     Active Substance: DEXAMETHASONE
  70. ELOMEL [Concomitant]
  71. OLIVE OIL [Concomitant]
     Active Substance: OLIVE OIL
  72. TAZOBACTAM [Concomitant]
     Active Substance: TAZOBACTAM
  73. Oleovit [Concomitant]
  74. PANTOPRAZOLE SODIUM [Concomitant]
     Active Substance: PANTOPRAZOLE SODIUM
  75. AMOXICILLIN [Concomitant]
     Active Substance: AMOXICILLIN
  76. Leukichtan [Concomitant]
  77. TRAZODONE HYDROCHLORIDE [Concomitant]
     Active Substance: TRAZODONE HYDROCHLORIDE
  78. Halset [Concomitant]
  79. LORAZEPAM [Concomitant]
     Active Substance: LORAZEPAM
  80. LOVENOX [Concomitant]
     Active Substance: ENOXAPARIN SODIUM
  81. VITAMIN C [Concomitant]
     Active Substance: ASCORBIC ACID
  82. Motrim [Concomitant]
  83. MORPHINE SULFATE [Concomitant]
     Active Substance: MORPHINE SULFATE

REACTIONS (19)
  - Pseudomonal sepsis [Recovered/Resolved]
  - Vascular device infection [Recovered/Resolved]
  - Brain oedema [Not Recovered/Not Resolved]
  - Metastases to lymph nodes [Not Recovered/Not Resolved]
  - Candida infection [Recovered/Resolved]
  - Back pain [Recovered/Resolved]
  - C-reactive protein increased [Not Recovered/Not Resolved]
  - Vomiting [Recovered/Resolved]
  - Nausea [Recovered/Resolved]
  - Fatigue [Not Recovered/Not Resolved]
  - Nail bed inflammation [Unknown]
  - Eczema [Not Recovered/Not Resolved]
  - Pleural effusion [Recovered/Resolved]
  - Restlessness [Unknown]
  - Nasal mucosal disorder [Recovered/Resolved]
  - Streptococcal sepsis [Recovered/Resolved]
  - Varicose vein [Not Recovered/Not Resolved]
  - Intentional product use issue [Unknown]
  - Off label use [Unknown]

NARRATIVE: CASE EVENT DATE: 20191101
